FAERS Safety Report 10174826 (Version 1)
Quarter: 2014Q2

REPORT INFORMATION
  Report Type: Spontaneous
  Country: CN (occurrence: CN)
  Receive Date: 20140515
  Receipt Date: 20140515
  Transmission Date: 20141212
  Serious: Yes (Hospitalization)
  Sender: FDA-Public Use
  Company Number: CN-BAYER-2014-068194

PATIENT
  Age: 61 Year
  Sex: Male
  Weight: 70 kg

DRUGS (6)
  1. GLUCOBAY [Suspect]
     Indication: INSULIN AUTOIMMUNE SYNDROME
     Dosage: 50 MG, TID
     Route: 048
     Dates: start: 20130209, end: 20130610
  2. GLUCOBAY [Interacting]
     Indication: DIABETIC KETOACIDOSIS
  3. HUMALOG [Interacting]
     Indication: INSULIN AUTOIMMUNE SYNDROME
     Dosage: 12 U, TID
     Route: 058
     Dates: start: 20130209, end: 20130610
  4. HUMALOG [Interacting]
     Indication: DIABETIC KETOACIDOSIS
  5. TRITACE [Concomitant]
     Indication: HYPERTENSION
     Dosage: 5 MG, QD
     Route: 048
     Dates: start: 20130427, end: 20130613
  6. BAYASPIRIN [Concomitant]
     Indication: CORONARY ARTERY DISEASE
     Dosage: 100 MG, QD
     Route: 048
     Dates: start: 20130209, end: 20130613

REACTIONS (1)
  - Hypoglycaemic coma [Recovered/Resolved]
